FAERS Safety Report 4849094-X (Version None)
Quarter: 2005Q4

REPORT INFORMATION
  Report Type: 
  Country: None (occurrence: None)
  Receive Date: 20051209
  Receipt Date: 20050616
  Transmission Date: 20060501
  Serious: Yes (Hospitalization)
  Sender: FDA-Public Use
  Company Number: 2005AP03335

PATIENT
  Age: 5181 Day
  Sex: Male

DRUGS (6)
  1. SEROQUEL [Suspect]
     Indication: BIPOLAR I DISORDER
     Route: 048
     Dates: start: 20050525, end: 20050601
  2. DEPAKENE [Suspect]
     Indication: BIPOLAR I DISORDER
     Route: 048
     Dates: start: 20050525
  3. HALOPERIDOL [Concomitant]
     Route: 048
     Dates: start: 20050525
  4. TREMIN [Concomitant]
     Route: 048
     Dates: start: 20050525
  5. ROHYPNOL [Concomitant]
     Route: 048
  6. EURODIN [Concomitant]
     Indication: INSOMNIA
     Route: 048
     Dates: start: 20050525, end: 20050601

REACTIONS (1)
  - ENCEPHALOPATHY [None]
